FAERS Safety Report 4834655-4 (Version None)
Quarter: 2005Q4

REPORT INFORMATION
  Report Type: 
  Country: None (occurrence: None)
  Receive Date: 20051122
  Receipt Date: 20050608
  Transmission Date: 20060501
  Serious: No
  Sender: FDA-Public Use
  Company Number: US-BRISTOL-MYERS SQUIBB COMPANY-12997789

PATIENT
  Age: 89 Year
  Sex: Male

DRUGS (7)
  1. PRAVACHOL [Suspect]
     Dates: start: 20050112
  2. ZETIA [Concomitant]
  3. ACTONEL [Concomitant]
  4. HYDROCHLOROTHIAZIDE [Concomitant]
  5. PREDNISONE [Concomitant]
  6. COZAAR [Concomitant]
  7. ATENOLOL [Concomitant]

REACTIONS (1)
  - HAEMATOCRIT DECREASED [None]
